FAERS Safety Report 22288709 (Version 1)
Quarter: 2023Q2

REPORT INFORMATION
  Report Type: Spontaneous
  Country: US (occurrence: US)
  Receive Date: 20230505
  Receipt Date: 20230505
  Transmission Date: 20230722
  Serious: Yes (Other)
  Sender: FDA-Public Use
  Company Number: US-PFIZER INC-PV202300079116

PATIENT
  Age: 63 Year
  Sex: Female

DRUGS (1)
  1. NURTEC ODT [Suspect]
     Active Substance: RIMEGEPANT SULFATE
     Dosage: 75 MG, AS NEEDED(TAKE 1 TABLET ON OR UNDER THE TONGUE EVERY OTHER DAY AS NEEDED)
     Route: 048

REACTIONS (2)
  - Blindness unilateral [Recovering/Resolving]
  - Migraine [Unknown]
